FAERS Safety Report 8603704-X (Version None)
Quarter: 2012Q3

REPORT INFORMATION
  Report Type: 
  Country: None (occurrence: None)
  Receive Date: 20120817
  Receipt Date: 20120813
  Transmission Date: 20120928
  Serious: Yes (Death)
  Sender: FDA-Public Use
  Company Number: US-AMGEN-USASP2012051354

PATIENT
  Age: 74 Year
  Sex: Female

DRUGS (13)
  1. LIPITOR [Concomitant]
  2. CELEBREX [Concomitant]
  3. PROLIA [Suspect]
     Indication: OSTEOPOROSIS POSTMENOPAUSAL
     Dates: start: 20120803
  4. VERAPAMIL [Concomitant]
  5. NEXIUM [Concomitant]
  6. OXYCODONE HCL [Concomitant]
  7. VITAMIN D [Concomitant]
  8. CALCIUM + VITAMIN D [Concomitant]
     Dosage: UNK
  9. OXYCONTIN [Concomitant]
  10. LISINOPRIL AND HYDROCHLOROTHIAZIDE [Concomitant]
     Dosage: UNK
  11. CYMBALTA [Concomitant]
  12. ALBUTEROL [Concomitant]
  13. RANITIDINE [Concomitant]

REACTIONS (1)
  - STAPHYLOCOCCAL SEPSIS [None]
